FAERS Safety Report 7784507-5 (Version None)
Quarter: 2011Q3

REPORT INFORMATION
  Report Type: 
  Country: None (occurrence: None)
  Receive Date: 20110928
  Receipt Date: 20110919
  Transmission Date: 20111222
  Serious: Yes (Other)
  Sender: FDA-Public Use
  Company Number: CA-JNJFOC-20110908978

PATIENT
  Age: 45 Year
  Sex: Male
  Weight: 108.86 kg

DRUGS (1)
  1. NICOTINE [Suspect]
     Indication: SMOKING CESSATION THERAPY
     Dosage: ONE PIECE PER DOSE, AS MANY AS 24 PIECES PER DAY
     Route: 048
     Dates: start: 20080919

REACTIONS (3)
  - OVERDOSE [None]
  - INCORRECT DRUG ADMINISTRATION DURATION [None]
  - DEPENDENCE [None]
